FAERS Safety Report 19920069 (Version 3)
Quarter: 2021Q4

REPORT INFORMATION
  Report Type: Spontaneous
  Country: JP (occurrence: JP)
  Receive Date: 20211006
  Receipt Date: 20211217
  Transmission Date: 20220303
  Serious: Yes (Other)
  Sender: FDA-Public Use
  Company Number: NVSJ2021JP014724

PATIENT
  Age: 34 Year
  Sex: Male
  Weight: 67 kg

DRUGS (1)
  1. GLIVEC [Suspect]
     Active Substance: IMATINIB MESYLATE
     Indication: Gastrointestinal stromal tumour
     Dosage: 400 MG
     Route: 048
     Dates: start: 2006, end: 20121217

REACTIONS (1)
  - Oligoasthenozoospermia [Recovering/Resolving]

NARRATIVE: CASE EVENT DATE: 20121217
